FAERS Safety Report 8390784-2 (Version None)
Quarter: 2012Q2

REPORT INFORMATION
  Report Type: 
  Country: None (occurrence: None)
  Receive Date: 20120515
  Receipt Date: 20120504
  Transmission Date: 20120825
  Serious: Yes (Other)
  Sender: FDA-Public Use
  Company Number: 2012SP024047

PATIENT
  Age: 53 Year
  Sex: Male

DRUGS (1)
  1. VICTRELIS [Suspect]
     Indication: PRODUCT USED FOR UNKNOWN INDICATION
     Dosage: 800 MG;TID;PO
     Route: 048
     Dates: start: 20120109, end: 20120502

REACTIONS (7)
  - HEADACHE [None]
  - NAUSEA [None]
  - DEPRESSION [None]
  - DIARRHOEA [None]
  - FORMICATION [None]
  - CONSTIPATION [None]
  - FATIGUE [None]
